FAERS Safety Report 6893415-3 (Version None)
Quarter: 2010Q3

REPORT INFORMATION
  Report Type: 
  Country: None (occurrence: None)
  Receive Date: 20100731
  Receipt Date: 20090908
  Transmission Date: 20110219
  Serious: No
  Sender: FDA-Public Use
  Company Number: US-PFIZER INC-2009251154

PATIENT
  Sex: Male
  Weight: 74.8 kg

DRUGS (4)
  1. LIPITOR [Suspect]
     Indication: HYPERLIPIDAEMIA
     Dosage: 40 MG, 1X/DAY
     Dates: start: 20041229, end: 20090713
  2. NIACIN [Concomitant]
     Dosage: 500 MG, 2X/DAY
     Route: 048
  3. FISH OIL [Concomitant]
     Dosage: 2000 MG, 2X/DAY
     Route: 048
  4. DICYCLOMINE [Concomitant]
     Dosage: 10 MG, 1X/DAY
     Route: 048

REACTIONS (4)
  - ASTHENIA [None]
  - FATIGUE [None]
  - HIGH DENSITY LIPOPROTEIN DECREASED [None]
  - MYALGIA [None]
